FAERS Safety Report 22257209 (Version 2)
Quarter: 2023Q2

REPORT INFORMATION
  Report Type: Spontaneous
  Country: CH (occurrence: CH)
  Receive Date: 20230427
  Receipt Date: 20230630
  Transmission Date: 20230721
  Serious: Yes (Hospitalization)
  Sender: FDA-Public Use
  Company Number: CH-002147023-NVSC2023CH091457

PATIENT
  Age: 66 Year
  Sex: Female

DRUGS (2)
  1. XOLAIR [Suspect]
     Active Substance: OMALIZUMAB
     Indication: Angioedema
     Dosage: 300 MG, Q4W,, SOLUTION FOR INJECTION
     Route: 065
     Dates: start: 202212
  2. XOLAIR [Suspect]
     Active Substance: OMALIZUMAB
     Indication: Urticaria

REACTIONS (3)
  - Haematoma [Unknown]
  - Thrombocytopenia [Recovering/Resolving]
  - Rosacea [Unknown]

NARRATIVE: CASE EVENT DATE: 20230301
